FAERS Safety Report 6979903-X (Version None)
Quarter: 2010Q3

REPORT INFORMATION
  Report Type: 
  Country: None (occurrence: None)
  Receive Date: 20100914
  Receipt Date: 20100831
  Transmission Date: 20110219
  Serious: Yes (Other)
  Sender: FDA-Public Use
  Company Number: US-ELI_LILLY_AND_COMPANY-US201009001362

PATIENT
  Sex: Female

DRUGS (22)
  1. FORTEO [Suspect]
     Indication: OSTEOPOROSIS
  2. PREDNISONE [Concomitant]
     Dosage: 9 MG, UNK
  3. CARVEDILOL [Concomitant]
     Dosage: 25 MG, 2/D
  4. COUMADIN [Concomitant]
     Dosage: 5 MG, QOD
  5. COUMADIN [Concomitant]
     Dosage: 2.5 MG, QOD
  6. HYDROXYCHLOROQUINE [Concomitant]
     Indication: SYSTEMIC LUPUS ERYTHEMATOSUS
     Dosage: 300 MG, DAILY (1/D)
  7. ERYTHROMYCIN [Concomitant]
     Indication: ROSACEA
     Dosage: 500 MG, DAILY (1/D)
  8. FOLBIC [Concomitant]
     Dosage: UNK, DAILY (1/D)
  9. TRIAMTERENE [Concomitant]
     Dosage: 37.5 MG, DAILY (1/D)
  10. ISOSORBIDE [Concomitant]
     Dosage: 2 D/F, DAILY (1/D)
  11. NITROGLYCERIN [Concomitant]
     Dosage: UNK, AS NEEDED
  12. DILTIAZEM [Concomitant]
     Indication: HEART RATE IRREGULAR
     Dosage: 30 MG, 4/D
  13. LEFLUNOMIDE [Concomitant]
     Dosage: 20 MG, QOD
  14. AMBIEN [Concomitant]
     Indication: SLEEP DISORDER
  15. KETOCONAZOLE [Concomitant]
  16. TRIAMCINOLONE [Concomitant]
     Indication: PHLEBITIS
  17. PATADAY [Concomitant]
  18. CALCIUM WITH VITAMIN D [Concomitant]
     Dosage: 1800 MG, UNK
  19. TYLENOL (CAPLET) [Concomitant]
     Dosage: UNK, DAILY (1/D)
  20. VITAMIN-B-COMPLEX STANDARD [Concomitant]
     Dosage: UNK, DAILY (1/D)
  21. MULTI-VITAMINS [Concomitant]
     Dosage: UNK, DAILY (1/D)
  22. VITAMIN D [Concomitant]
     Dosage: 1200 IU, UNK

REACTIONS (1)
  - SQUAMOUS CELL CARCINOMA [None]
